FAERS Safety Report 16125353 (Version 2)
Quarter: 2019Q2

REPORT INFORMATION
  Report Type: Report from Study
  Country: JP (occurrence: JP)
  Receive Date: 20190327
  Receipt Date: 20190424
  Transmission Date: 20190711
  Serious: Yes (Hospitalization, Other)
  Sender: FDA-Public Use
  Company Number: PHJP2018JP001371

PATIENT
  Age: 69 Year
  Sex: Male
  Weight: 69 kg

DRUGS (3)
  1. COSENTYX [Suspect]
     Active Substance: SECUKINUMAB
     Dosage: 150 MG, 4W
     Route: 058
     Dates: start: 20180427
  2. COSENTYX [Suspect]
     Active Substance: SECUKINUMAB
     Indication: PSORIASIS
     Dosage: 300 MG, QW
     Route: 058
     Dates: start: 20170908, end: 20171007
  3. COSENTYX [Suspect]
     Active Substance: SECUKINUMAB
     Dosage: 300 MG, 4W
     Route: 058
     Dates: start: 20171106

REACTIONS (6)
  - Anaemia [Recovered/Resolved]
  - Varices oesophageal [Recovering/Resolving]
  - Faeces discoloured [Unknown]
  - Gastric varices [Recovering/Resolving]
  - Rhegmatogenous retinal detachment [Unknown]
  - Colon adenoma [Recovering/Resolving]

NARRATIVE: CASE EVENT DATE: 201712
